FAERS Safety Report 6916915-6 (Version None)
Quarter: 2010Q3

REPORT INFORMATION
  Report Type: 
  Country: None (occurrence: None)
  Receive Date: 20100810
  Receipt Date: 20100805
  Transmission Date: 20110219
  Serious: Yes (Death)
  Sender: FDA-Public Use
  Company Number: CA-ALLERGAN-1010234US

PATIENT
  Age: 60 Year
  Sex: Female
  Weight: 65 kg

DRUGS (10)
  1. BOTOX [Suspect]
     Indication: PRODUCT USED FOR UNKNOWN INDICATION
     Dosage: 40 UNITS, SINGLE
     Route: 030
  2. ASPIRIN [Concomitant]
  3. CALCIUM [Concomitant]
  4. EFFEXOR XR [Concomitant]
  5. GLUCOSAMINE [Concomitant]
  6. LECITHIN [Concomitant]
  7. LIPITOR [Concomitant]
  8. MULTI-VITAMIN [Concomitant]
  9. PREMARIN [Concomitant]
  10. RILUTEK [Concomitant]
     Indication: PRODUCT USED FOR UNKNOWN INDICATION

REACTIONS (1)
  - SALIVA ALTERED [None]
